FAERS Safety Report 7325138-0 (Version None)
Quarter: 2011Q1

REPORT INFORMATION
  Report Type: 
  Country: None (occurrence: None)
  Receive Date: 20110302
  Receipt Date: 20110216
  Transmission Date: 20110831
  Serious: Yes (Hospitalization, Other)
  Sender: FDA-Public Use
  Company Number: DE-AMGEN-QUU444866

PATIENT
  Age: 57 Year
  Sex: Female

DRUGS (11)
  1. VOLTAREN [Suspect]
     Indication: SPINAL CORD DISORDER
  2. UNACID                             /00903602/ [Suspect]
     Indication: ERYSIPELAS
     Dosage: 375 MG, BID
     Dates: start: 20100101, end: 20100701
  3. AMPARO [Concomitant]
     Indication: HYPERTENSION
     Dosage: 5 MG, UNK
     Dates: start: 20080901
  4. PANTOPRAZOLE [Concomitant]
     Indication: GASTRITIS PROPHYLAXIS
     Dosage: 20 MG, UNK
     Dates: start: 20070101
  5. CITALOPRAM [Concomitant]
     Indication: PANIC ATTACK
     Dosage: 40 MG, UNK
     Dates: start: 20090601
  6. PREDNISOLONE [Suspect]
     Indication: RHEUMATOID ARTHRITIS
     Dosage: 7.5 MG, QD
     Route: 048
     Dates: start: 19990101, end: 20100101
  7. PAROXETINE [Concomitant]
     Indication: ANXIETY
     Dosage: 20 MG, UNK
     Dates: start: 20090601
  8. HYDROCHLOROTHIAZIDE [Concomitant]
     Indication: HYPERTENSION
     Dosage: 12.5 MG, UNK
  9. VOLTAREN [Suspect]
     Indication: RHEUMATOID ARTHRITIS
     Dosage: 75-150 MG
     Dates: start: 20040201, end: 20100723
  10. BONDIOL [Concomitant]
     Indication: OSTEOPOROSIS
     Dosage: 1 A?G, UNK
     Dates: start: 20050801
  11. ETANERCEPT [Suspect]
     Indication: RHEUMATOID ARTHRITIS
     Dosage: 50 MG, QWK
     Route: 058
     Dates: start: 20100111, end: 20100614

REACTIONS (6)
  - ERYSIPELAS [None]
  - INFLAMMATORY BOWEL DISEASE [None]
  - INFECTION [None]
  - ACUTE PRERENAL FAILURE [None]
  - PROCTITIS ULCERATIVE [None]
  - SIGMOIDITIS [None]
